FAERS Safety Report 12105913 (Version 2)
Quarter: 2016Q1

REPORT INFORMATION
  Report Type: Report from Study
  Country: JP (occurrence: JP)
  Receive Date: 20160223
  Receipt Date: 20160307
  Transmission Date: 20160526
  Serious: Yes (Death, Other)
  Sender: FDA-Public Use
  Company Number: JP-OTSUKA-2016_001810

PATIENT
  Age: 74 Year
  Sex: Female
  Weight: 65.9 kg

DRUGS (8)
  1. URSODEOXYCHOLIC ACID [Concomitant]
     Active Substance: URSODIOL
     Indication: PRODUCT USED FOR UNKNOWN INDICATION
     Dosage: 300 MG, DAILY DOSE
     Route: 048
  2. TOLVAPTAN [Suspect]
     Active Substance: TOLVAPTAN
     Indication: FLUID RETENTION
     Dosage: 3.75 MG, QD, EVERY MORNING
     Route: 048
     Dates: start: 20150204, end: 20151103
  3. ALBUMIN [Concomitant]
     Active Substance: ALBUMIN (HUMAN)
     Indication: OEDEMA DUE TO HEPATIC DISEASE
     Dosage: 100 ML, DAILY DOSE
     Route: 042
     Dates: start: 20150122, end: 20150123
  4. ALBUMIN [Concomitant]
     Active Substance: ALBUMIN (HUMAN)
     Dosage: 100 ML, DAILY DOSE
     Route: 042
     Dates: start: 20150223, end: 20150225
  5. SPIRONOLACTONE. [Concomitant]
     Active Substance: SPIRONOLACTONE
     Indication: FLUID RETENTION
     Dosage: 25 MG, DAILY DOSE
     Route: 048
  6. MEROPENEM TRIHYDRATE [Concomitant]
     Active Substance: MEROPENEM
     Indication: ESCHERICHIA SEPSIS
     Dosage: 0.5 G, DAILY DOSE
     Route: 042
     Dates: start: 20151103, end: 20151117
  7. SOLDEM 1 [Concomitant]
     Active Substance: DEXTROSE\SODIUM CHLORIDE\SODIUM LACTATE
     Indication: ESCHERICHIA SEPSIS
     Dosage: 1000 ML, DAILY DOSE
     Route: 042
     Dates: start: 20151103, end: 20151107
  8. LOSARTAN POTASSIUM. [Concomitant]
     Active Substance: LOSARTAN POTASSIUM
     Indication: PRODUCT USED FOR UNKNOWN INDICATION
     Dosage: 25 MG, DAILY DOSE
     Route: 048

REACTIONS (5)
  - Escherichia sepsis [Fatal]
  - Hepatic failure [Fatal]
  - Hyperglycaemia [Unknown]
  - Dysphagia [Unknown]
  - Renal failure [Fatal]

NARRATIVE: CASE EVENT DATE: 20150520
